FAERS Safety Report 18374448 (Version 4)
Quarter: 2020Q4

REPORT INFORMATION
  Report Type: Spontaneous
  Country: US (occurrence: US)
  Receive Date: 20201012
  Receipt Date: 20201123
  Transmission Date: 20210114
  Serious: Yes (Other)
  Sender: FDA-Public Use
  Company Number: US-ASTRAZENECA-2020SF31829

PATIENT
  Age: 55 Year
  Sex: Female
  Weight: 51.7 kg

DRUGS (14)
  1. BREO ELLIPTA [Concomitant]
     Active Substance: FLUTICASONE FUROATE\VILANTEROL TRIFENATATE
     Indication: ASTHMA
     Route: 065
  2. WIXELA INHUB [Concomitant]
     Active Substance: FLUTICASONE PROPIONATE\SALMETEROL XINAFOATE
     Indication: ASTHMA
     Route: 065
     Dates: start: 201908
  3. FULVESTRANT. [Suspect]
     Active Substance: FULVESTRANT
     Indication: BREAST CANCER STAGE IV
     Dosage: 500 MG ON DAYS 1, 15, AND 29
     Route: 030
     Dates: start: 201908
  4. FULVESTRANT. [Suspect]
     Active Substance: FULVESTRANT
     Indication: BREAST CANCER STAGE IV
     Route: 030
     Dates: end: 202009
  5. FLUTICASONE PROPIONATE SALMETEROL [Concomitant]
     Indication: ASTHMA
     Dosage: 100/50MCG EVERY 12 HOURS
     Route: 055
     Dates: start: 20200128
  6. DULERA [Concomitant]
     Active Substance: FORMOTEROL FUMARATE DIHYDRATE\MOMETASONE FUROATE
     Indication: ASTHMA
     Route: 065
  7. XGEVA [Concomitant]
     Active Substance: DENOSUMAB
     Indication: METASTASES TO BONE
     Dosage: UNKNOWN DOSE MONTHLY
     Route: 058
     Dates: start: 201805
  8. XANAX [Concomitant]
     Active Substance: ALPRAZOLAM
     Indication: ANXIETY
     Dosage: 0.25MG AS REQUIRED
     Route: 048
     Dates: start: 201902
  9. VITAMIN C [Concomitant]
     Active Substance: ASCORBIC ACID
     Route: 048
  10. ARIMIDEX [Suspect]
     Active Substance: ANASTROZOLE
     Indication: BREAST CANCER FEMALE
     Route: 048
     Dates: start: 201805, end: 2019
  11. XGEVA [Concomitant]
     Active Substance: DENOSUMAB
     Indication: METASTASES TO BONE
     Dosage: UNKNOWN DOSE EVERY THREE MONTHS
     Route: 058
  12. FLUTICASONE PROPIONATE SALMETEROL [Concomitant]
     Indication: ASTHMA
     Dosage: 100/50MCG EVERY 12 HOURS
     Route: 055
  13. FLUTICASONE PROPIONATE SALMETEROL [Concomitant]
     Indication: ASTHMA
     Dosage: 100/50MCG EVERY 24 HOURS OR DAILY
     Route: 055
  14. ADVAIR HFA [Concomitant]
     Active Substance: FLUTICASONE PROPIONATE\SALMETEROL XINAFOATE
     Indication: ASTHMA
     Route: 065

REACTIONS (11)
  - Drug resistance [Unknown]
  - Malignant neoplasm progression [Not Recovered/Not Resolved]
  - Rash [Not Recovered/Not Resolved]
  - Anxiety [Unknown]
  - Lymphatic disorder [Not Recovered/Not Resolved]
  - Breast neoplasm [Not Recovered/Not Resolved]
  - Insomnia [Unknown]
  - Drug ineffective [Unknown]
  - Breast cancer stage IV [Not Recovered/Not Resolved]
  - Pulmonary mass [Unknown]
  - Dyspnoea [Recovered/Resolved]

NARRATIVE: CASE EVENT DATE: 2018
